FAERS Safety Report 12829902 (Version 1)
Quarter: 2016Q4

REPORT INFORMATION
  Report Type: Spontaneous
  Country: US (occurrence: US)
  Receive Date: 20161007
  Receipt Date: 20161007
  Transmission Date: 20170207
  Serious: No
  Sender: FDA-Public Use
  Company Number: US-SA-2016SA079746

PATIENT
  Age: 48 Year
  Sex: Male

DRUGS (19)
  1. CYMBALTA [Concomitant]
     Active Substance: DULOXETINE HYDROCHLORIDE
  2. COQ10 [Concomitant]
     Active Substance: UBIDECARENONE
  3. MORPHINE [Concomitant]
     Active Substance: MORPHINE
  4. TESTOSTERONE CYPIONATE. [Concomitant]
     Active Substance: TESTOSTERONE CYPIONATE
  5. VITAMIN D [Concomitant]
     Active Substance: CHOLECALCIFEROL
  6. MARINOL [Concomitant]
     Active Substance: DRONABINOL
  7. AMOXICILLIN. [Concomitant]
     Active Substance: AMOXICILLIN
  8. AVONEX [Concomitant]
     Active Substance: INTERFERON BETA-1A
  9. OXYCODONE [Concomitant]
     Active Substance: OXYCODONE
  10. LEVETIRACETAM. [Concomitant]
     Active Substance: LEVETIRACETAM
  11. TEMAZEPAM. [Concomitant]
     Active Substance: TEMAZEPAM
  12. BUSPIRONE [Concomitant]
     Active Substance: BUSPIRONE HYDROCHLORIDE
  13. SPRYCEL [Concomitant]
     Active Substance: DASATINIB
  14. DETROL [Concomitant]
     Active Substance: TOLTERODINE TARTRATE
  15. VITAMIN C [Concomitant]
     Active Substance: ASCORBIC ACID
  16. DULOXETINE. [Concomitant]
     Active Substance: DULOXETINE
  17. AUBAGIO [Suspect]
     Active Substance: TERIFLUNOMIDE
     Indication: MULTIPLE SCLEROSIS
     Route: 048
     Dates: start: 20160223
  18. LORTAB [Concomitant]
     Active Substance: ACETAMINOPHEN\HYDROCODONE BITARTRATE
  19. DOXAZOSIN [Concomitant]
     Active Substance: DOXAZOSIN\DOXAZOSIN MESYLATE

REACTIONS (1)
  - Frequent bowel movements [Unknown]

NARRATIVE: CASE EVENT DATE: 2016
